FAERS Safety Report 5402415-1 (Version None)
Quarter: 2007Q3

REPORT INFORMATION
  Report Type: 
  Country: None (occurrence: None)
  Receive Date: 20070730
  Receipt Date: 20070730
  Transmission Date: 20080115
  Serious: Yes (Disabling, Other)
  Sender: FDA-Public Use
  Company Number: None

PATIENT
  Age: 11 Year
  Sex: Male
  Weight: 49.8957 kg

DRUGS (2)
  1. MERCAPTOPURINE [Suspect]
     Indication: CROHN'S DISEASE
     Dosage: 1 PILL ONCE A DAY PO
     Route: 048
     Dates: start: 20050708, end: 20070729
  2. ASACOL [Suspect]
     Indication: CROHN'S DISEASE
     Dosage: 4 PILLS TWICE PO
     Route: 048
     Dates: start: 20050708, end: 20070729

REACTIONS (1)
  - PSORIASIS [None]
